FAERS Safety Report 20120660 (Version 1)
Quarter: 2021Q4

REPORT INFORMATION
  Report Type: Report from Study
  Country: DE (occurrence: DE)
  Receive Date: 20211126
  Receipt Date: 20211126
  Transmission Date: 20220303
  Serious: Yes (Hospitalization)
  Sender: FDA-Public Use
  Company Number: DE-SA-2020SA218728

PATIENT
  Age: 71 Year
  Sex: Male
  Weight: 62 kg

DRUGS (16)
  1. OXALIPLATIN [Suspect]
     Active Substance: OXALIPLATIN
     Indication: Colorectal cancer
     Dosage: 117 MG, QOW (BIWEEKLY)
     Route: 042
     Dates: start: 20200818, end: 20200818
  2. OXALIPLATIN [Suspect]
     Active Substance: OXALIPLATIN
     Dosage: 117 MG, QOW (BIWEEKLY)
     Route: 042
     Dates: start: 20200708, end: 20200708
  3. LEVOLEUCOVORIN CALCIUM [Suspect]
     Active Substance: LEVOLEUCOVORIN CALCIUM
     Indication: Colorectal cancer
     Dosage: 602 MG, QOW (BIWEEKLY)
     Route: 042
     Dates: start: 20200818, end: 20200818
  4. LEVOLEUCOVORIN CALCIUM [Suspect]
     Active Substance: LEVOLEUCOVORIN CALCIUM
     Dosage: 602 MG, QOW (BIWEEKLY)
     Route: 042
     Dates: start: 20200708, end: 20200708
  5. FLUOROURACIL [Suspect]
     Active Substance: FLUOROURACIL
     Indication: Colorectal cancer
     Dosage: 3302.4 MG, QOW (BIWEEKLY)
     Route: 042
     Dates: start: 20200818, end: 20200818
  6. FLUOROURACIL [Suspect]
     Active Substance: FLUOROURACIL
     Dosage: 3302.4 MG, QOW (BIWEEKLY)
     Route: 042
     Dates: start: 20200708, end: 20200708
  7. ASPIRIN [Concomitant]
     Active Substance: ASPIRIN
     Indication: Anticoagulant therapy
     Dosage: 100 MG, QD
     Route: 048
     Dates: start: 20200602, end: 20200926
  8. SIMVASTATIN [Concomitant]
     Active Substance: SIMVASTATIN
     Indication: Lipids decreased
     Dosage: 10 MG, QD
     Route: 048
     Dates: start: 20200817, end: 20200926
  9. MOVICOL [MACROGOL 4000;POTASSIUM CHLORIDE;SODIUM BICARBONATE;SODIUM CH [Concomitant]
     Dosage: 13 G
     Route: 048
     Dates: start: 20200826, end: 20200926
  10. SAB SIMPLEX [DIMETICONE] [Concomitant]
     Indication: Flatulence
     Dosage: 3 TIMES PER DAY
     Route: 048
     Dates: start: 20200826, end: 20200926
  11. LEVOTHYROXINE SODIUM [Concomitant]
     Active Substance: LEVOTHYROXINE SODIUM
     Indication: Thyroid disorder
     Dosage: 50 MG,ONE PER DAY
     Route: 048
     Dates: start: 20200826, end: 20200926
  12. TORSEMIDE [Concomitant]
     Active Substance: TORSEMIDE
     Indication: Diuretic therapy
     Dosage: 10 MG, QD
     Route: 048
     Dates: start: 20200826, end: 20200926
  13. SPIRONOLACTONE [Concomitant]
     Active Substance: SPIRONOLACTONE
     Indication: Diuretic therapy
     Dosage: 50 MG, QD
     Route: 048
     Dates: start: 20200826, end: 20200926
  14. ALLOPURINOL [Concomitant]
     Active Substance: ALLOPURINOL
     Indication: Blood uric acid decreased
     Dosage: 300 MG, QD
     Route: 048
     Dates: start: 20200826, end: 20200926
  15. AMPICILLIN SODIUM\SULBACTAM SODIUM [Concomitant]
     Active Substance: AMPICILLIN SODIUM\SULBACTAM SODIUM
     Indication: Antibiotic therapy
     Dosage: 375 MG,TWO TIMES PER DAY
     Dates: start: 20200826, end: 20200911
  16. DEXAMETHASONE [Concomitant]
     Active Substance: DEXAMETHASONE
     Indication: Hepatic pain
     Dosage: 4 MG,AS NEEDED
     Route: 048
     Dates: start: 20200826, end: 20200926

REACTIONS (3)
  - Oedema peripheral [Unknown]
  - Fatigue [Unknown]
  - Abdominal pain [Recovered/Resolved]

NARRATIVE: CASE EVENT DATE: 20200817
